FAERS Safety Report 7242990-8 (Version None)
Quarter: 2011Q1

REPORT INFORMATION
  Report Type: 
  Country: None (occurrence: None)
  Receive Date: 20110125
  Receipt Date: 20110116
  Transmission Date: 20110831
  Serious: Yes (Other)
  Sender: FDA-Public Use
  Company Number: US-JNJFOC-20101005849

PATIENT
  Age: 28 Year
  Sex: Female
  Weight: 88.45 kg

DRUGS (1)
  1. TYLENOL COLD MULTI-SYMPTOM SEVERE DAYTIME COOL BURST [Suspect]
     Indication: INFLUENZA LIKE ILLNESS
     Dosage: 2 TABLESPOONS, TWICE
     Route: 048

REACTIONS (2)
  - DEHYDRATION [None]
  - HYPERSENSITIVITY [None]
